FAERS Safety Report 13257534 (Version 7)
Quarter: 2018Q3

REPORT INFORMATION
  Report Type: Spontaneous
  Country: FR (occurrence: FR)
  Receive Date: 20170221
  Receipt Date: 20180903
  Transmission Date: 20181010
  Serious: Yes (Other)
  Sender: FDA-Public Use
  Company Number: FR-PFIZER INC-2017069064

PATIENT
  Age: 14 Year
  Sex: Female
  Weight: 42.5 kg

DRUGS (8)
  1. VORICONAZOLE. [Interacting]
     Active Substance: VORICONAZOLE
     Indication: BRONCHOPULMONARY ASPERGILLOSIS
     Dosage: UNK, 2X/DAY (7.5 MG/KG/12 H)
     Route: 048
  2. VORICONAZOLE. [Interacting]
     Active Substance: VORICONAZOLE
     Dosage: 350 MG/12 HOURS (DOSE INCREASE (UP TO 8.75 MG/KG/12 H)
  3. VORICONAZOLE. [Interacting]
     Active Substance: VORICONAZOLE
     Dosage: UNK
     Route: 042
  4. CASPOFUNGIN [Concomitant]
     Active Substance: CASPOFUNGIN
     Dosage: 50 MG, DAILY (50 MG/DAY)
  5. VINCRISTINE SULFATE. [Interacting]
     Active Substance: VINCRISTINE SULFATE
     Dosage: 1.5 MG, UNK
  6. VORICONAZOLE. [Interacting]
     Active Substance: VORICONAZOLE
     Indication: BRONCHOPULMONARY ASPERGILLOSIS
     Dosage: 300 MG/12 HOURS (MEAN 7.5 MG/KG )
     Route: 042
  7. VINCRISTINE SULFATE. [Suspect]
     Active Substance: VINCRISTINE SULFATE
     Indication: ACUTE LYMPHOCYTIC LEUKAEMIA
     Dosage: 2 MG, CYCLIC (FOUR INFUSIONS)
     Route: 042
  8. METHOTREXATE. [Concomitant]
     Active Substance: METHOTREXATE
     Dosage: 5 G/M 2 OVER 24 HOURS
     Route: 041

REACTIONS (9)
  - Encephalopathy [Recovered/Resolved]
  - Hallucinations, mixed [Recovered/Resolved]
  - Disorientation [Unknown]
  - Hypoaesthesia [Unknown]
  - Musculoskeletal pain [Unknown]
  - Drug interaction [Unknown]
  - Neuralgia [Unknown]
  - Arthralgia [Unknown]
  - Confusional state [Unknown]
